FAERS Safety Report 5889056-7 (Version None)
Quarter: 2008Q3

REPORT INFORMATION
  Report Type: 
  Country: None (occurrence: None)
  Receive Date: 20080919
  Receipt Date: 20080626
  Transmission Date: 20090109
  Serious: No
  Sender: FDA-Public Use
  Company Number: US-KINGPHARMUSA00001-K200800747

PATIENT

DRUGS (5)
  1. SONATA [Suspect]
     Indication: INSOMNIA
     Dosage: 5 MG, PRN AT BEDTIME
     Route: 048
     Dates: start: 20080625, end: 20080626
  2. SYNTHROID [Concomitant]
     Indication: HYPOTHYROIDISM
     Dosage: UNK, QD
     Route: 048
  3. ACIPHEX [Concomitant]
     Indication: REFLUX GASTRITIS
     Dosage: UNK, QD
     Route: 048
  4. BISMUTH SUBCITRATE TRIPOTASSIUM [Concomitant]
     Indication: HELICOBACTER PYLORI IDENTIFICATION TEST
     Route: 048
     Dates: start: 20080626
  5. ZYRTEC [Concomitant]
     Indication: HYPERSENSITIVITY
     Dosage: UNK, QD
     Route: 048

REACTIONS (2)
  - DYSARTHRIA [None]
  - SOMNOLENCE [None]
